FAERS Safety Report 8029726-8 (Version None)
Quarter: 2012Q1

REPORT INFORMATION
  Report Type: 
  Country: None (occurrence: None)
  Receive Date: 20120109
  Receipt Date: 20111230
  Transmission Date: 20120608
  Serious: Yes (Other)
  Sender: FDA-Public Use
  Company Number: US-BAYER-2012-000965

PATIENT
  Sex: Female
  Weight: 127 kg

DRUGS (2)
  1. YAZ [Suspect]
     Route: 048
  2. YASMIN [Suspect]
     Route: 048

REACTIONS (7)
  - MATERNAL EXPOSURE DURING PREGNANCY [None]
  - BLOOD CHOLESTEROL INCREASED [None]
  - PREGNANCY [None]
  - TRANSIENT ISCHAEMIC ATTACK [None]
  - MIGRAINE [None]
  - LOW DENSITY LIPOPROTEIN INCREASED [None]
  - METRORRHAGIA [None]
